FAERS Safety Report 7785001-8 (Version None)
Quarter: 2011Q3

REPORT INFORMATION
  Report Type: 
  Country: None (occurrence: None)
  Receive Date: 20110928
  Receipt Date: 20110920
  Transmission Date: 20111222
  Serious: Yes (Other)
  Sender: FDA-Public Use
  Company Number: PHEH2011US01040

PATIENT
  Sex: Female

DRUGS (6)
  1. ZOMETA [Suspect]
     Indication: BREAST CANCER
     Dosage: 4 MG, QMO
     Route: 042
     Dates: start: 20031201, end: 20040401
  2. LORTAB [Concomitant]
  3. MORPHINE SULFATE [Concomitant]
  4. TEBAMIDE [Concomitant]
  5. DECADRON [Concomitant]
  6. PHENERGAN HCL [Concomitant]

REACTIONS (6)
  - ATELECTASIS [None]
  - GASTROOESOPHAGEAL REFLUX DISEASE [None]
  - INTERVERTEBRAL DISC DEGENERATION [None]
  - METASTASES TO BONE [None]
  - METASTASES TO LUNG [None]
  - CHRONIC OBSTRUCTIVE PULMONARY DISEASE [None]
